FAERS Safety Report 21918470 (Version 4)
Quarter: 2023Q1

REPORT INFORMATION
  Report Type: Report from Study
  Country: IN (occurrence: IN)
  Receive Date: 20230127
  Receipt Date: 20230211
  Transmission Date: 20230417
  Serious: Yes (Hospitalization)
  Sender: FDA-Public Use
  Company Number: IN-AMGEN-INDCT2023014208

PATIENT
  Age: 60 Year
  Sex: Male
  Weight: 59.2 kg

DRUGS (19)
  1. CARFILZOMIB [Suspect]
     Active Substance: CARFILZOMIB
     Indication: Plasma cell myeloma
     Dosage: 90 MILLIGRAM
     Route: 042
     Dates: start: 20220527
  2. POVIDONE-IODINE [Concomitant]
     Active Substance: POVIDONE-IODINE
     Dosage: 10 MILLILITER
     Route: 048
     Dates: start: 20220528
  3. AMMONIUM CHLORIDE;CHLORPHENAMINE;DEXTROMETHORPHAN;GUAIFENESIN [Concomitant]
     Dosage: 10 MILLILITER
     Route: 048
     Dates: start: 20221013
  4. Calcimax forte [Concomitant]
     Dosage: 1 UNK
     Route: 048
     Dates: start: 20220528
  5. ACYCLOVIR [Concomitant]
     Active Substance: ACYCLOVIR
     Dosage: 400 MILLIGRAM
     Route: 048
     Dates: start: 20220527
  6. UPRISE D3 [Concomitant]
     Dosage: 1 UNK
     Route: 048
     Dates: start: 20220528
  7. SULFAMETHOXAZOLE [Concomitant]
     Active Substance: SULFAMETHOXAZOLE
     Dosage: 800 MILLIGRAM
     Route: 048
     Dates: start: 20220527
  8. TRIMETHOPRIM [Concomitant]
     Active Substance: TRIMETHOPRIM
     Dosage: 160 MILLIGRAM
     Route: 048
     Dates: start: 20220527
  9. FLUCONAZOLE [Concomitant]
     Active Substance: FLUCONAZOLE
     Dosage: 150 MILLIGRAM
     Route: 048
     Dates: start: 20220527
  10. FERROUS FUMARATE [Concomitant]
     Active Substance: FERROUS FUMARATE
     Dosage: 152 MILLIGRAM
     Route: 048
     Dates: start: 20220723
  11. SODIUM CHLORIDE [Concomitant]
     Active Substance: SODIUM CHLORIDE
     Dosage: 750 MILLILITER
     Dates: start: 20220527
  12. PHENIRAMINE [Concomitant]
     Active Substance: PHENIRAMINE
     Dosage: 2 MILLILITER
     Dates: start: 20220527
  13. PANTOPRAZOLE [Concomitant]
     Active Substance: PANTOPRAZOLE
     Dosage: 40 MILLIGRAM
     Dates: start: 20220527
  14. PALONOSETRON [Concomitant]
     Active Substance: PALONOSETRON
     Dosage: 0.25 MILLIGRAM
     Dates: start: 20220527
  15. FOLIC ACID [Concomitant]
     Active Substance: FOLIC ACID
     Dosage: UNK
     Route: 048
     Dates: start: 20220528
  16. DEXAMETHASONE [Concomitant]
     Active Substance: DEXAMETHASONE
     Dosage: 20 MILLIGRAM
     Dates: start: 20220527, end: 20221224
  17. HYDROCORTISONE [Concomitant]
     Active Substance: HYDROCORTISONE
     Dosage: 100 MILLIGRAM
     Route: 042
     Dates: start: 20230119, end: 20230119
  18. FUROSEMIDE [Concomitant]
     Active Substance: FUROSEMIDE
     Dosage: 10 MILLIGRAM
     Route: 042
     Dates: start: 20230119, end: 20230119
  19. ACECLOFENAC;PARACETAMOL [Concomitant]
     Dosage: 425 GRAM
     Route: 048
     Dates: start: 20221225, end: 20221229

REACTIONS (1)
  - Acute kidney injury [Unknown]

NARRATIVE: CASE EVENT DATE: 20230122
